FAERS Safety Report 8445112-0 (Version None)
Quarter: 2012Q2

REPORT INFORMATION
  Report Type: 
  Country: None (occurrence: None)
  Receive Date: 20120618
  Receipt Date: 20120611
  Transmission Date: 20120825
  Serious: No
  Sender: FDA-Public Use
  Company Number: US-PFIZER INC-2012140118

PATIENT
  Sex: Female
  Weight: 72.562 kg

DRUGS (3)
  1. XANAX [Suspect]
  2. DAYPRO [Suspect]
  3. AMLODIPINE BESYLATE [Suspect]

REACTIONS (1)
  - DRUG HYPERSENSITIVITY [None]
